FAERS Safety Report 8581009-3 (Version None)
Quarter: 2012Q3

REPORT INFORMATION
  Report Type: 
  Country: None (occurrence: None)
  Receive Date: 20120809
  Receipt Date: 20120803
  Transmission Date: 20120928
  Serious: No
  Sender: FDA-Public Use
  Company Number: US-PFIZER INC-2012190692

PATIENT
  Age: 75 Year
  Sex: Male

DRUGS (2)
  1. INLYTA [Suspect]
     Indication: NEOPLASM MALIGNANT
     Dosage: 7 MG, 2X/DAY
     Route: 048
     Dates: start: 20120608, end: 20120615
  2. INLYTA [Suspect]
     Dosage: 5 MG, 2X/DAY
     Dates: start: 20120601

REACTIONS (2)
  - FATIGUE [None]
  - DRUG INTOLERANCE [None]
